FAERS Safety Report 15955427 (Version 1)
Quarter: 2019Q1

REPORT INFORMATION
  Report Type: Report from Study
  Country: US (occurrence: US)
  Receive Date: 20190213
  Receipt Date: 20190213
  Transmission Date: 20190417
  Serious: Yes (Hospitalization)
  Sender: FDA-Public Use
  Company Number: US-ROCHE-2264485

PATIENT
  Sex: Male
  Weight: 78.54 kg

DRUGS (2)
  1. ALECENSA [Suspect]
     Active Substance: ALECTINIB HYDROCHLORIDE
     Indication: NEOPLASM MALIGNANT
     Dosage: 8 DAILY, ONGOING; YES
     Route: 048
     Dates: start: 20190117
  2. IBUPROFEN. [Concomitant]
     Active Substance: IBUPROFEN
     Dosage: ONGOING; UNKNOWN
     Route: 048
     Dates: start: 20190114

REACTIONS (1)
  - Pancreatitis [Unknown]
